FAERS Safety Report 9282081 (Version 1)
Quarter: 2013Q2

REPORT INFORMATION
  Report Type: Spontaneous
  Country: US (occurrence: None)
  Receive Date: 20130508
  Receipt Date: 20130508
  Transmission Date: 20140414
  Serious: Yes (Hospitalization)
  Sender: FDA-Public Use
  Company Number: None

PATIENT
  Age: 62 Year
  Sex: Male
  Weight: 67.3 kg

DRUGS (1)
  1. CEFTRIAXONE [Suspect]
     Route: 042
     Dates: start: 20120919, end: 20121010

REACTIONS (2)
  - Chills [None]
  - Chills [None]
